FAERS Safety Report 21933529 (Version 1)
Quarter: 2023Q1

REPORT INFORMATION
  Report Type: Spontaneous
  Country: PT (occurrence: PT)
  Receive Date: 20230201
  Receipt Date: 20230201
  Transmission Date: 20230418
  Serious: Yes (Other)
  Sender: FDA-Public Use
  Company Number: PT-CHEPLA-2023001203

PATIENT
  Age: 56 Year
  Sex: Male

DRUGS (2)
  1. CLONAZEPAM [Suspect]
     Active Substance: CLONAZEPAM
     Indication: Stiff person syndrome
  2. BACLOFEN [Suspect]
     Active Substance: BACLOFEN

REACTIONS (4)
  - Subcapsular splenic haematoma [Unknown]
  - Haemoperitoneum [Unknown]
  - Fall [Unknown]
  - Product use in unapproved indication [Unknown]
